FAERS Safety Report 15163769 (Version 2)
Quarter: 2018Q3

REPORT INFORMATION
  Report Type: Spontaneous
  Country: US (occurrence: US)
  Receive Date: 20180719
  Receipt Date: 20180814
  Transmission Date: 20181010
  Serious: No
  Sender: FDA-Public Use
  Company Number: US-009507513-1807USA008133

PATIENT
  Age: 15 Year
  Sex: Female
  Weight: 105.67 kg

DRUGS (2)
  1. NEXPLANON [Suspect]
     Active Substance: ETONOGESTREL
     Indication: CONTRACEPTION
     Dosage: ONE IMPLANT, LEFT ARM
     Route: 059
     Dates: start: 20180712, end: 20180712
  2. NEXPLANON [Suspect]
     Active Substance: ETONOGESTREL
     Dosage: 68 MG DAILY, ONE IMPLANT, LEFT ARM
     Route: 059
     Dates: start: 20180712

REACTIONS (5)
  - Wound [Recovered/Resolved]
  - Device deployment issue [Not Recovered/Not Resolved]
  - Device expulsion [Recovered/Resolved]
  - Device difficult to use [Recovered/Resolved]
  - Complication of device insertion [Recovered/Resolved]

NARRATIVE: CASE EVENT DATE: 20180712
